FAERS Safety Report 4833389-X (Version None)
Quarter: 2005Q4

REPORT INFORMATION
  Report Type: 
  Country: None (occurrence: None)
  Receive Date: 20051117
  Receipt Date: 20051031
  Transmission Date: 20060501
  Serious: Yes (Hospitalization, Other)
  Sender: FDA-Public Use
  Company Number: 6014909

PATIENT
  Age: 73 Year
  Sex: Female

DRUGS (3)
  1. LEVOTHYROXINE SODIUM [Suspect]
     Indication: HYPOTHYROIDISM
     Dosage: 75,000 MCG, ORAL/YEARS
     Route: 048
  2. KETOPROFEN [Suspect]
     Indication: BACK PAIN
     Dosage: 100,000 MG(100 MG, 1 IN 1 D), INTRAMUSCULAR
     Route: 030
     Dates: start: 20041219, end: 20041225
  3. KETOPROFEN [Suspect]
     Indication: SCIATICA
     Dosage: 100,000 MG(100 MG, 1 IN 1 D), INTRAMUSCULAR
     Route: 030
     Dates: start: 20041219, end: 20041225

REACTIONS (7)
  - CAPILLARY PERMEABILITY INCREASED [None]
  - EOSINOPHILIC FASCIITIS [None]
  - GENERALISED OEDEMA [None]
  - PLEURAL EFFUSION [None]
  - PREALBUMIN DECREASED [None]
  - PROTEIN TOTAL DECREASED [None]
  - WEIGHT DECREASED [None]
